FAERS Safety Report 4762094-3 (Version None)
Quarter: 2005Q3

REPORT INFORMATION
  Report Type: 
  Country: None (occurrence: None)
  Receive Date: 20050901
  Receipt Date: 20050506
  Transmission Date: 20060218
  Serious: No
  Sender: FDA-Public Use
  Company Number: 200510941BWH

PATIENT
  Age: 55 Year
  Sex: Male

DRUGS (4)
  1. LEVITRA [Suspect]
     Indication: ERECTILE DYSFUNCTION
     Dosage: NI, PRN, ORAL
     Route: 048
  2. LIPITOR [Concomitant]
  3. DIOVAN [Concomitant]
  4. NORVASC [Concomitant]

REACTIONS (1)
  - ADVERSE DRUG REACTION [None]
